FAERS Safety Report 15689686 (Version 1)
Quarter: 2018Q4

REPORT INFORMATION
  Report Type: Spontaneous
  Country: NL (occurrence: NL)
  Receive Date: 20181205
  Receipt Date: 20181205
  Transmission Date: 20190205
  Serious: Yes (Hospitalization)
  Sender: FDA-Public Use
  Company Number: NL-ASTRAZENECA-2018SF57462

PATIENT
  Age: 75 Year
  Sex: Female

DRUGS (2)
  1. LOSEC [Suspect]
     Active Substance: OMEPRAZOLE
     Indication: DIAPHRAGMATIC HERNIA
     Dosage: 2 TIMES 2 TABLETS DAILY, GENERIC
     Route: 048
     Dates: start: 2014
  2. LOSEC [Suspect]
     Active Substance: OMEPRAZOLE
     Indication: DIAPHRAGMATIC HERNIA
     Dosage: 2 TIMES 2 TABLETS DAILY
     Route: 048
     Dates: start: 2000, end: 2014

REACTIONS (6)
  - Product substitution issue [Unknown]
  - Erythema [Unknown]
  - Product use in unapproved indication [Unknown]
  - Off label use [Unknown]
  - Blister [Unknown]
  - Product use issue [Unknown]

NARRATIVE: CASE EVENT DATE: 2014
